FAERS Safety Report 6526442-6 (Version None)
Quarter: 2009Q4

REPORT INFORMATION
  Report Type: 
  Country: None (occurrence: None)
  Receive Date: 20091223
  Receipt Date: 20091208
  Transmission Date: 20100525
  Serious: Yes (Death, Hospitalization)
  Sender: FDA-Public Use
  Company Number: APP200900796

PATIENT
  Age: 57 Year
  Sex: Male

DRUGS (24)
  1. CYTARABINE [Suspect]
     Indication: ACUTE MYELOID LEUKAEMIA
     Dosage: 1.5 G/M2 DAY3, 4 AND 5 OF 28-DAY; INTRAVENOUS
     Route: 042
     Dates: start: 20091009, end: 20091011
  2. IDARUBICIN HCL [Suspect]
     Indication: ACUTE MYELOID LEUKAEMIA
     Dosage: 12 MG/M2, ON DAYS 3, 4 AND 5 IF A 28-DAY, INTRAVENOUS
     Route: 042
     Dates: start: 20091009, end: 20091011
  3. SURVIVIN ASO (ELI LILLY STUDY DRUG) [Suspect]
     Indication: ACUTE MYELOID LEUKAEMIA
     Dosage: 750 MG, ON DAYS 1,2,3,8,15+22 OF A 28-DAY CYCLE; INTRAVENOUS
     Route: 042
     Dates: start: 20091007, end: 20091028
  4. NOVOLOG [Concomitant]
  5. ACYCLOVIR [Concomitant]
  6. AZTREONAM (AZTREONAM) [Concomitant]
  7. VORICONAZOLE [Concomitant]
  8. METRONIDAZOLE [Concomitant]
  9. FUROSEMIDE [Concomitant]
  10. VANCOMYCIN [Concomitant]
  11. POTASSIUM CHLORIDE [Concomitant]
  12. ENOXAPARIN SODIUM [Concomitant]
  13. MAGNESIUM SULFATE [Concomitant]
  14. INHALERS [Concomitant]
  15. CLINDAMYCIN HCL [Concomitant]
  16. GANCICLOVIR [Concomitant]
  17. SODIUM CHLORIDE 0.9% [Concomitant]
  18. ADENOSINE [Concomitant]
  19. DILTIAZEM [Concomitant]
  20. METOPROLOL (METOPROLOL) [Concomitant]
  21. MANNITOL [Concomitant]
  22. METHYLPREDNISOLONE [Concomitant]
  23. NOREPHINEPHRINE [Concomitant]
  24. ESMOLOL (ESMOLOL) [Concomitant]

REACTIONS (27)
  - ALANINE AMINOTRANSFERASE INCREASED [None]
  - ASPARTATE AMINOTRANSFERASE INCREASED [None]
  - ATELECTASIS [None]
  - BLOOD ALBUMIN DECREASED [None]
  - BLOOD CREATINE PHOSPHOKINASE MB INCREASED [None]
  - BLOOD FIBRINOGEN INCREASED [None]
  - BLOOD PH INCREASED [None]
  - CARDIAC FAILURE CONGESTIVE [None]
  - CONDITION AGGRAVATED [None]
  - FIBRIN D DIMER INCREASED [None]
  - HAEMOGLOBIN DECREASED [None]
  - HAEMORRHAGIC TRANSFORMATION STROKE [None]
  - ILEUS [None]
  - INTESTINAL DILATATION [None]
  - LUNG CONSOLIDATION [None]
  - LUNG INFECTION [None]
  - NEUTROPHIL COUNT DECREASED [None]
  - PLATELET COUNT DECREASED [None]
  - PLEURAL EFFUSION [None]
  - PNEUMOTHORAX [None]
  - PULMONARY ARTERIAL HYPERTENSION [None]
  - PULMONARY OEDEMA [None]
  - RESPIRATORY FAILURE [None]
  - SUBCUTANEOUS EMPHYSEMA [None]
  - THYROID DISORDER [None]
  - TROPONIN INCREASED [None]
  - WHITE BLOOD CELL COUNT DECREASED [None]
